FAERS Safety Report 5878156-3 (Version None)
Quarter: 2008Q3

REPORT INFORMATION
  Report Type: 
  Country: None (occurrence: None)
  Receive Date: 20080910
  Receipt Date: 20080910
  Transmission Date: 20090109
  Serious: Yes (Other)
  Sender: FDA-Public Use
  Company Number: None

PATIENT
  Age: 32 Year
  Sex: Female
  Weight: 67.1 kg

DRUGS (2)
  1. PROPOFOL [Suspect]
     Indication: ANAESTHESIA PROCEDURE
     Dosage: 159 MG X 1 IV
     Route: 042
     Dates: start: 20080826
  2. REMIFENTANYL [Suspect]
     Indication: ANAESTHESIA PROCEDURE
     Dosage: 400 MCG X 1 IV
     Route: 042
     Dates: start: 20080826

REACTIONS (1)
  - DRUG INEFFECTIVE [None]
